FAERS Safety Report 7859431-X (Version None)
Quarter: 2011Q4

REPORT INFORMATION
  Report Type: 
  Country: None (occurrence: None)
  Receive Date: 20111027
  Receipt Date: 20111020
  Transmission Date: 20120403
  Serious: Yes (Hospitalization)
  Sender: FDA-Public Use
  Company Number: DE-UCBSA-043883

PATIENT
  Age: 14 Year
  Sex: Male

DRUGS (4)
  1. KEPPRA [Suspect]
  2. ZYVOX [Suspect]
  3. VALPROATE SODIUM [Suspect]
  4. TOPAMAX [Suspect]

REACTIONS (2)
  - DRUG LEVEL DECREASED [None]
  - CONVULSION [None]
